FAERS Safety Report 8888633 (Version 2)
Quarter: 2012Q4

REPORT INFORMATION
  Report Type: 
  Country: JP (occurrence: JP)
  Receive Date: 20121106
  Receipt Date: 20121123
  Transmission Date: 20130627
  Serious: Yes (Death, Other)
  Sender: FDA-Public Use
  Company Number: JP-ROCHE-1151463

PATIENT
  Age: 64 None
  Sex: Male
  Weight: 50 kg

DRUGS (16)
  1. AVASTIN [Suspect]
     Indication: LUNG ADENOCARCINOMA METASTATIC
     Route: 041
     Dates: start: 20120523, end: 20120523
  2. AVASTIN [Suspect]
     Indication: LUNG ADENOCARCINOMA METASTATIC
     Route: 041
     Dates: start: 20120621, end: 20120621
  3. AVASTIN [Suspect]
     Indication: LUNG ADENOCARCINOMA METASTATIC
     Route: 041
     Dates: start: 20120719, end: 20120719
  4. AVASTIN [Suspect]
     Indication: LUNG ADENOCARCINOMA METASTATIC
     Route: 041
     Dates: start: 20120816, end: 20120816
  5. TAXOL [Concomitant]
     Indication: LUNG ADENOCARCINOMA
     Route: 041
     Dates: start: 20120523, end: 20120523
  6. TAXOL [Concomitant]
     Indication: LUNG ADENOCARCINOMA
     Route: 041
     Dates: start: 20120621, end: 20120621
  7. TAXOL [Concomitant]
     Indication: LUNG ADENOCARCINOMA
     Route: 041
     Dates: start: 20120719, end: 20120719
  8. TAXOL [Concomitant]
     Indication: LUNG ADENOCARCINOMA
     Route: 041
     Dates: start: 20120816, end: 20120816
  9. PARAPLATIN [Concomitant]
     Indication: LUNG ADENOCARCINOMA
     Route: 041
     Dates: start: 20120523, end: 20120523
  10. PARAPLATIN [Concomitant]
     Indication: LUNG ADENOCARCINOMA METASTATIC
     Route: 041
     Dates: start: 20120621, end: 20120621
  11. PARAPLATIN [Concomitant]
     Indication: LUNG ADENOCARCINOMA METASTATIC
     Route: 041
     Dates: start: 20120719, end: 20120719
  12. PARAPLATIN [Concomitant]
     Indication: LUNG ADENOCARCINOMA METASTATIC
     Route: 041
     Dates: start: 20120816, end: 20120816
  13. DECADRON [Concomitant]
     Indication: PROPHYLAXIS OF NAUSEA AND VOMITING
     Route: 041
     Dates: start: 20120523, end: 20120816
  14. ZANTAC [Concomitant]
     Indication: PROPHYLAXIS
     Route: 041
     Dates: start: 20120523, end: 20120816
  15. SEROTONE [Concomitant]
     Indication: PROPHYLAXIS OF NAUSEA AND VOMITING
     Route: 041
     Dates: start: 20120523, end: 20120816
  16. RESTAMIN [Concomitant]
     Indication: PROPHYLAXIS
     Route: 048
     Dates: start: 20120523, end: 20120816

REACTIONS (3)
  - Subarachnoid haemorrhage [Fatal]
  - Hypertension [Recovering/Resolving]
  - Intracranial aneurysm [Unknown]
